FAERS Safety Report 13854532 (Version 1)
Quarter: 2017Q3

REPORT INFORMATION
  Report Type: Spontaneous
  Country: US (occurrence: US)
  Receive Date: 20170810
  Receipt Date: 20170810
  Transmission Date: 20171127
  Serious: Yes (Other)
  Sender: FDA-Public Use
  Company Number: US-NOVOPROD-557099

PATIENT
  Age: 74 Year
  Sex: Female
  Weight: 74.83 kg

DRUGS (2)
  1. LEVEMIR [Suspect]
     Active Substance: INSULIN DETEMIR
     Indication: TYPE 2 DIABETES MELLITUS
     Dosage: 12 UNITS IN THE MORNING AND 20 UNITS IN THE EVENING
     Route: 058
     Dates: start: 2006
  2. NOVOLOG [Suspect]
     Active Substance: INSULIN ASPART
     Indication: TYPE 2 DIABETES MELLITUS
     Dosage: 5 UNITS WITH BREAKFAST, 8 UNITS WITH LUNCH, AND 5 UNITS WITH DINNER
     Route: 058
     Dates: start: 2015

REACTIONS (6)
  - Injection site erythema [Not Recovered/Not Resolved]
  - Glycosylated haemoglobin decreased [Unknown]
  - Cataract [Recovered/Resolved]
  - Blood glucose increased [Not Recovered/Not Resolved]
  - Glycosylated haemoglobin increased [Unknown]
  - Diabetic retinopathy [Not Recovered/Not Resolved]

NARRATIVE: CASE EVENT DATE: 201502
